FAERS Safety Report 7504239-8 (Version None)
Quarter: 2011Q2

REPORT INFORMATION
  Report Type: 
  Country: None (occurrence: None)
  Receive Date: 20110525
  Receipt Date: 20090930
  Transmission Date: 20111010
  Serious: Yes (Other)
  Sender: FDA-Public Use
  Company Number: US-BAYER-200934816NA

PATIENT
  Age: 65 Year
  Sex: Male
  Weight: 104 kg

DRUGS (39)
  1. TRASYLOL [Suspect]
     Indication: MITRAL VALVE REPLACEMENT
     Dosage: 2 MILLION KIU PRIME
     Route: 042
     Dates: start: 20041112, end: 20041112
  2. ALBUTEROL INHALER [Concomitant]
     Dosage: 2 PUFFS EVERY 4HOURS
  3. ATENOLOL [Concomitant]
     Indication: BLOOD PRESSURE MANAGEMENT
     Dosage: 50MG TWICE A DAY
     Route: 048
  4. LISINOPRIL [Concomitant]
     Dosage: 40MG DAILY
     Route: 048
     Dates: start: 20040726
  5. LASIX [Concomitant]
     Indication: PRODUCT USED FOR UNKNOWN INDICATION
     Dosage: UNK
     Dates: start: 20041108, end: 20041108
  6. DOXYCYCLINE [Concomitant]
     Dosage: 100MG TWICE DAILY
     Route: 048
     Dates: start: 20040918
  7. LOVASTATIN [Concomitant]
     Dosage: UNK
     Route: 048
     Dates: start: 20041006
  8. METOLAZONE [Concomitant]
     Indication: PRODUCT USED FOR UNKNOWN INDICATION
     Dosage: UNK
     Dates: start: 20041108, end: 20041108
  9. CATAPRES [Concomitant]
     Indication: PRODUCT USED FOR UNKNOWN INDICATION
     Dosage: UNK
     Dates: start: 20041108, end: 20041108
  10. TRASYLOL [Suspect]
     Dosage: 1 ML (INITIAL DOSE), UNK
     Route: 042
     Dates: start: 20041112
  11. TRASYLOL [Suspect]
     Dosage: 50 ML, Q1HR
     Route: 042
     Dates: start: 20041112
  12. CONTRAST MEDIA [Concomitant]
     Indication: CATHETERISATION CARDIAC
     Dosage: UNK
     Dates: start: 20041109
  13. EPOGEN [Concomitant]
     Indication: PRODUCT USED FOR UNKNOWN INDICATION
     Dosage: UNK
     Dates: start: 20041108, end: 20041108
  14. INS [INSULIN] [Concomitant]
     Indication: PRODUCT USED FOR UNKNOWN INDICATION
     Dosage: UNK
     Dates: start: 20041108, end: 20041108
  15. MAXIPIME [Concomitant]
     Indication: PRODUCT USED FOR UNKNOWN INDICATION
     Dosage: UNK
     Dates: start: 20041108, end: 20041108
  16. KETAMINE HCL [Concomitant]
     Indication: PRODUCT USED FOR UNKNOWN INDICATION
     Dosage: UNK
     Route: 042
     Dates: start: 20041108, end: 20041108
  17. HYDROCHLOROTHIAZIDE [Concomitant]
     Dosage: 25MG DAILY
     Route: 048
     Dates: start: 20041006
  18. VANCOMYCIN [Concomitant]
  19. CEFEPIME [Concomitant]
  20. DIFLUCAN [Concomitant]
  21. DOBUTAMINE HYDROCHLORIDE [Concomitant]
     Indication: PRODUCT USED FOR UNKNOWN INDICATION
     Dosage: UNK
     Dates: start: 20041108, end: 20041108
  22. LEVOPHED [Concomitant]
     Indication: PRODUCT USED FOR UNKNOWN INDICATION
     Dosage: UNK
     Dates: start: 20041108, end: 20041108
  23. AMIODARONE HCL [Concomitant]
     Indication: PRODUCT USED FOR UNKNOWN INDICATION
     Dosage: UNK
     Dates: start: 20041108, end: 20041108
  24. SEROQUEL [Concomitant]
     Indication: PRODUCT USED FOR UNKNOWN INDICATION
  25. GLYBURIDE [Concomitant]
     Indication: TYPE 2 DIABETES MELLITUS
     Dosage: 5MG TWICE DAILY
     Route: 048
     Dates: start: 20040918
  26. CLONIDINE [Concomitant]
     Indication: PRODUCT USED FOR UNKNOWN INDICATION
     Dosage: UNK
     Dates: start: 20041108, end: 20041108
  27. CIPROFLOXACIN [Concomitant]
     Indication: PRODUCT USED FOR UNKNOWN INDICATION
     Dosage: UNK
     Dates: start: 20041108, end: 20041108
  28. VERSED [Concomitant]
     Indication: PRODUCT USED FOR UNKNOWN INDICATION
     Dosage: UNK
     Route: 042
     Dates: start: 20041108, end: 20041108
  29. DEPAKOTE [Concomitant]
     Indication: PRODUCT USED FOR UNKNOWN INDICATION
  30. CLONIDINE [Concomitant]
  31. RED BLOOD CELLS [Concomitant]
     Indication: PRODUCT USED FOR UNKNOWN INDICATION
     Dosage: 3 U, UNK
     Route: 042
     Dates: start: 20041112
  32. PLASMA [Concomitant]
     Indication: PRODUCT USED FOR UNKNOWN INDICATION
     Dosage: 2 U, UNK
     Dates: start: 20041112
  33. TERAZOSIN HCL [Concomitant]
     Dosage: 1MG NIGHTLY
     Route: 048
  34. PLENDIL [Concomitant]
     Indication: PRODUCT USED FOR UNKNOWN INDICATION
     Dosage: UNK
     Dates: start: 20041108, end: 20041108
  35. ANCEF [Concomitant]
     Indication: PRODUCT USED FOR UNKNOWN INDICATION
     Dosage: 2 G INTRAOPERATIVELY, UNK
     Route: 042
     Dates: start: 20041108, end: 20041108
  36. PAXIL [Concomitant]
     Indication: ANTIDEPRESSANT THERAPY
     Dosage: UNK
  37. DOPAMINE HCL [Concomitant]
     Indication: PRODUCT USED FOR UNKNOWN INDICATION
     Dosage: UNK
     Dates: start: 20041108, end: 20041108
  38. HALDOL [Concomitant]
     Indication: PRODUCT USED FOR UNKNOWN INDICATION
     Dosage: UNK
     Dates: start: 20041108, end: 20041108
  39. FENTANYL [Concomitant]
     Indication: PRODUCT USED FOR UNKNOWN INDICATION
     Dosage: UNK
     Route: 042
     Dates: start: 20041108, end: 20041108

REACTIONS (12)
  - EMOTIONAL DISTRESS [None]
  - FEAR OF DEATH [None]
  - RENAL INJURY [None]
  - INJURY [None]
  - NERVOUSNESS [None]
  - ANXIETY [None]
  - PAIN [None]
  - RENAL FAILURE [None]
  - MULTI-ORGAN FAILURE [None]
  - DEPRESSION [None]
  - FEAR [None]
  - ANHEDONIA [None]
